FAERS Safety Report 5917994-5 (Version None)
Quarter: 2008Q4

REPORT INFORMATION
  Report Type: 
  Country: None (occurrence: None)
  Receive Date: 20081009
  Receipt Date: 20080917
  Transmission Date: 20090506
  Serious: Yes (Hospitalization)
  Sender: FDA-Public Use
  Company Number: 2008S1003055

PATIENT
  Age: 60 Year
  Sex: Female

DRUGS (4)
  1. FLUOXETINE [Suspect]
     Indication: DRUG USE FOR UNKNOWN INDICATION
  2. METHYLENE BLUE (METHYLTHIONINIUM CHLORIDE) [Suspect]
     Indication: PARATHYROIDECTOMY
     Dosage: 7.5 MG/KG; INTRAVENOUS
     Route: 042
  3. BECLOMETHASONE DIPROPIONATE [Concomitant]
  4. CO-PROXAMOL /00016701/ [Concomitant]

REACTIONS (14)
  - AGGRESSION [None]
  - AGITATION [None]
  - CHROMATURIA [None]
  - DRUG INTERACTION [None]
  - DYSKINESIA [None]
  - FLUSHING [None]
  - HAEMOGLOBIN DECREASED [None]
  - HYPERHIDROSIS [None]
  - MYDRIASIS [None]
  - NYSTAGMUS [None]
  - RESPIRATORY ACIDOSIS [None]
  - SEROTONIN SYNDROME [None]
  - SKIN DISCOLOURATION [None]
  - VOMITING [None]
